FAERS Safety Report 18454158 (Version 1)
Quarter: 2020Q4

REPORT INFORMATION
  Report Type: Spontaneous
  Country: GB (occurrence: GB)
  Receive Date: 20201102
  Receipt Date: 20201102
  Transmission Date: 20210114
  Serious: Yes (Life-Threatening)
  Sender: FDA-Public Use
  Company Number: GB-JNJFOC-20201043411

PATIENT
  Age: 34 Year
  Sex: Male
  Weight: 86.2 kg

DRUGS (15)
  1. STELARA [Suspect]
     Active Substance: USTEKINUMAB
     Indication: CROHN^S DISEASE
     Route: 058
     Dates: start: 202003, end: 20200911
  2. LOPERAMIDE HYDROCHLORIDE. [Concomitant]
     Active Substance: LOPERAMIDE HYDROCHLORIDE
  3. METRONIDAZOLE. [Concomitant]
     Active Substance: METRONIDAZOLE
  4. HYOSCINE BUTYLBROMIDE [Concomitant]
     Active Substance: BUTYLSCOPOLAMINE BROMIDE
  5. CO-AMOXICLAV                       /02043401/ [Concomitant]
     Active Substance: AMOXICILLIN\CLAVULANIC ACID
  6. ANHYDROUS MERCAPTOPURINE [Concomitant]
     Active Substance: MERCAPTOPURINE
  7. HYDROCORTISONE. [Concomitant]
     Active Substance: HYDROCORTISONE
  8. STELARA [Suspect]
     Active Substance: USTEKINUMAB
     Route: 058
     Dates: start: 201907
  9. CYCLIZINE [Concomitant]
     Active Substance: CYCLIZINE
  10. ADCAL                              /07357001/ [Concomitant]
     Active Substance: CALCIUM CARBONATE
  11. PARACETAMOL [Concomitant]
     Active Substance: ACETAMINOPHEN
  12. PREDNISOLONE. [Concomitant]
     Active Substance: PREDNISOLONE
  13. DALTEPARIN SODIUM [Concomitant]
     Active Substance: DALTEPARIN SODIUM
  14. PROPRANOLOL [Concomitant]
     Active Substance: PROPRANOLOL HYDROCHLORIDE
  15. AMITRIPTYLINE [Concomitant]
     Active Substance: AMITRIPTYLINE

REACTIONS (11)
  - Acute kidney injury [Unknown]
  - Abdominal sepsis [Not Recovered/Not Resolved]
  - Intestinal perforation [Unknown]
  - Myelosuppression [Unknown]
  - Necrosis [Unknown]
  - Abdominal pain [Unknown]
  - Unresponsive to stimuli [Unknown]
  - Crohn^s disease [Unknown]
  - Small intestinal obstruction [Unknown]
  - Inflammation [Unknown]
  - Acute hepatic failure [Unknown]

NARRATIVE: CASE EVENT DATE: 202009
